FAERS Safety Report 8927945 (Version 1)
Quarter: 2012Q4

REPORT INFORMATION
  Report Type: Spontaneous
  Country: US (occurrence: None)
  Receive Date: 20121126
  Receipt Date: 20121126
  Transmission Date: 20130627
  Serious: Yes (Disabling)
  Sender: FDA-Public Use
  Company Number: None

PATIENT
  Age: 61 Year
  Sex: Female

DRUGS (1)
  1. LEVOFLOXACIN [Suspect]
     Indication: BRONCHITIS
     Route: 048
     Dates: start: 20121022, end: 20121030

REACTIONS (6)
  - Tendon pain [None]
  - Joint range of motion decreased [None]
  - Tendonitis [None]
  - Pain in extremity [None]
  - Myalgia [None]
  - Muscle fatigue [None]
